APPROVED DRUG PRODUCT: STROMECTOL
Active Ingredient: IVERMECTIN
Strength: 3MG
Dosage Form/Route: TABLET;ORAL
Application: N050742 | Product #002 | TE Code: AB
Applicant: MERCK SHARP AND DOHME CORP
Approved: Oct 8, 1998 | RLD: Yes | RS: Yes | Type: RX